FAERS Safety Report 4458234-6 (Version None)
Quarter: 2004Q3

REPORT INFORMATION
  Report Type: 
  Country: None (occurrence: None)
  Receive Date: 20040917
  Receipt Date: 20040315
  Transmission Date: 20050211
  Serious: Yes (Hospitalization)
  Sender: FDA-Public Use
  Company Number: US-JNJFOC-20040303517

PATIENT
  Age: 16 Year
  Sex: Female

DRUGS (2)
  1. TOPAMAX [Suspect]
     Indication: HEADACHE
     Dosage: 125 MG, IN 1 DAY, ORAL
     Route: 048
     Dates: start: 20031101
  2. LEXAPRO [Concomitant]

REACTIONS (1)
  - PANCREATITIS [None]
